FAERS Safety Report 6357775-4 (Version None)
Quarter: 2009Q3

REPORT INFORMATION
  Report Type: 
  Country: None (occurrence: None)
  Receive Date: 20090911
  Receipt Date: 20090903
  Transmission Date: 20100115
  Serious: Yes (Hospitalization, Disabling)
  Sender: FDA-Public Use
  Company Number: SPV1-2009-00526

PATIENT
  Age: 64 Year
  Sex: Male

DRUGS (6)
  1. FOSRENOL [Suspect]
     Indication: HYPERPHOSPHATAEMIA
     Dosage: MG, ORAL
     Route: 048
     Dates: start: 20090319, end: 20090320
  2. RENAGEL [Concomitant]
  3. AMLODIPINE BESYLATE [Concomitant]
  4. ALLOPURINOL [Concomitant]
  5. PROTECADIN (LAFUTIDINE) [Concomitant]
  6. PERDIPINE (NICARDIPPINE HYDROCHLORIDE) [Concomitant]

REACTIONS (4)
  - FREQUENT BOWEL MOVEMENTS [None]
  - ILEUS [None]
  - NAUSEA [None]
  - VOMITING [None]
